FAERS Safety Report 5662283-X (Version None)
Quarter: 2008Q1

REPORT INFORMATION
  Report Type: 
  Country: None (occurrence: None)
  Receive Date: 20080312
  Receipt Date: 20080303
  Transmission Date: 20080703
  Serious: Yes (Hospitalization)
  Sender: FDA-Public Use
  Company Number: US-MERCK-0705USA02789

PATIENT
  Age: 62 Year
  Sex: Female

DRUGS (1)
  1. FOSAMAX [Suspect]
     Indication: OSTEOPOROSIS
     Route: 048
     Dates: start: 20040501

REACTIONS (9)
  - APPENDIX DISORDER [None]
  - ARTHROPATHY [None]
  - GALLBLADDER DISORDER [None]
  - HYPOAESTHESIA [None]
  - INFECTION [None]
  - JAW DISORDER [None]
  - PAIN [None]
  - TEMPOROMANDIBULAR JOINT SYNDROME [None]
  - TOOTH LOSS [None]
